FAERS Safety Report 21387610 (Version 1)
Quarter: 2022Q3

REPORT INFORMATION
  Report Type: Spontaneous
  Country: US (occurrence: US)
  Receive Date: 20220928
  Receipt Date: 20220928
  Transmission Date: 20221027
  Serious: No
  Sender: FDA-Public Use
  Company Number: US-AVEO ONCOLOGY-2022-AVEO-US000382

PATIENT

DRUGS (7)
  1. FOTIVDA [Suspect]
     Active Substance: TIVOZANIB HYDROCHLORIDE
     Indication: Renal cell carcinoma
     Dosage: 1.34 MG, DAILY FOR 21 DAYS WITH 7 DAYS OFF (28-DAY CYCLE)
     Route: 048
     Dates: start: 20220729
  2. ARMOUR THYROID [Concomitant]
     Active Substance: THYROID, PORCINE
     Dosage: 90 MG
     Route: 048
  3. LIOTHYRONINE SODIUM [Concomitant]
     Active Substance: LIOTHYRONINE SODIUM
     Dosage: 25 MCG
     Route: 048
  4. VITAMIN C [Concomitant]
     Active Substance: ASCORBIC ACID
     Dosage: 500 MG
  5. ZINC SULFATE [Concomitant]
     Active Substance: ZINC SULFATE
     Dosage: 50 MG
  6. VITAMIN D3 [Concomitant]
     Active Substance: CHOLECALCIFEROL
     Dosage: 25 MCG
  7. VITAMIN A [Concomitant]
     Active Substance: VITAMIN A

REACTIONS (2)
  - Blood pressure increased [Recovered/Resolved]
  - Cough [Unknown]

NARRATIVE: CASE EVENT DATE: 20220101
